FAERS Safety Report 15095664 (Version 1)
Quarter: 2018Q3

REPORT INFORMATION
  Report Type: Report from Study
  Country: CA (occurrence: CA)
  Receive Date: 20180702
  Receipt Date: 20180702
  Transmission Date: 20181010
  Serious: Yes (Other)
  Sender: FDA-Public Use
  Company Number: CA-AMGEN-CANSL2017012531

PATIENT
  Age: 77 Year
  Sex: Female

DRUGS (4)
  1. PREGABALIN. [Concomitant]
     Active Substance: PREGABALIN
  2. XARELTO [Concomitant]
     Active Substance: RIVAROXABAN
  3. PROLIA [Suspect]
     Active Substance: DENOSUMAB
     Indication: OSTEOPOROSIS POSTMENOPAUSAL
     Dosage: UNK
     Route: 065
     Dates: start: 20150715
  4. METOPROLOL. [Concomitant]
     Active Substance: METOPROLOL

REACTIONS (4)
  - Fall [Unknown]
  - Gingival abscess [Unknown]
  - Swelling face [Unknown]
  - Haematoma [Recovered/Resolved]

NARRATIVE: CASE EVENT DATE: 20161224
